FAERS Safety Report 5053973-0 (Version None)
Quarter: 2006Q3

REPORT INFORMATION
  Report Type: 
  Country: None (occurrence: None)
  Receive Date: 20060713
  Receipt Date: 20060703
  Transmission Date: 20061208
  Serious: Yes (Other)
  Sender: FDA-Public Use
  Company Number: CHNY2006DE02000

PATIENT
  Sex: Male

DRUGS (1)
  1. PENCICLOVIR [Suspect]
     Indication: HERPES SIMPLEX
     Dosage: APPLIED 3 TIMES, TOPICAL
     Route: 061
     Dates: start: 20060601

REACTIONS (2)
  - FACIAL PALSY [None]
  - HYPOAESTHESIA [None]
